FAERS Safety Report 8852414 (Version 1)
Quarter: 2012Q4

REPORT INFORMATION
  Report Type: 
  Country: US (occurrence: US)
  Receive Date: 20121022
  Receipt Date: 20121022
  Transmission Date: 20130627
  Serious: No
  Sender: FDA-Public Use
  Company Number: US-B.I. PHARMACEUTICALS,INC./RIDGEFIELD-2012-BP-26214BP

PATIENT
  Age: 78 None
  Sex: Male

DRUGS (2)
  1. PRADAXA [Suspect]
     Indication: BLOOD DISORDER
     Dosage: 300 mg
     Route: 048
     Dates: start: 201208
  2. ASPIRIN [Concomitant]
     Dosage: 325 mg
     Route: 048
     Dates: start: 20121019

REACTIONS (8)
  - Back pain [Not Recovered/Not Resolved]
  - Arthralgia [Recovered/Resolved]
  - Burning sensation [Not Recovered/Not Resolved]
  - Arthralgia [Not Recovered/Not Resolved]
  - Pain [Not Recovered/Not Resolved]
  - Dizziness [Not Recovered/Not Resolved]
  - Pollakiuria [Not Recovered/Not Resolved]
  - Dyspnoea [Not Recovered/Not Resolved]
